FAERS Safety Report 12633334 (Version 2)
Quarter: 2016Q3

REPORT INFORMATION
  Report Type: Spontaneous
  Country: US (occurrence: US)
  Receive Date: 20160808
  Receipt Date: 20160808
  Transmission Date: 20161109
  Serious: No
  Sender: FDA-Public Use
  Company Number: US-BEH-2016060603

PATIENT
  Sex: Female
  Weight: 108 kg

DRUGS (36)
  1. LISINOPRIL. [Concomitant]
     Active Substance: LISINOPRIL
  2. OXYCODONE [Concomitant]
     Active Substance: OXYCODONE
  3. SYNTHROID [Concomitant]
     Active Substance: LEVOTHYROXINE SODIUM
  4. KEFLEX [Concomitant]
     Active Substance: CEPHALEXIN
  5. PROTONIX [Concomitant]
     Active Substance: PANTOPRAZOLE SODIUM
  6. ATENOLOL. [Concomitant]
     Active Substance: ATENOLOL
  7. SPIRONOLACTONE. [Concomitant]
     Active Substance: SPIRONOLACTONE
  8. VITAMIN D [Concomitant]
     Active Substance: CHOLECALCIFEROL
  9. PRILOSEC [Concomitant]
     Active Substance: OMEPRAZOLE MAGNESIUM
  10. COUMADIN [Concomitant]
     Active Substance: WARFARIN SODIUM
  11. HIZENTRA [Suspect]
     Active Substance: HUMAN IMMUNOGLOBULIN G
     Indication: IMMUNODEFICIENCY COMMON VARIABLE
     Route: 058
  12. NUVIGIL [Concomitant]
     Active Substance: ARMODAFINIL
  13. DIFLUCAN [Concomitant]
     Active Substance: FLUCONAZOLE
  14. ARIMIDEX [Concomitant]
     Active Substance: ANASTROZOLE
  15. CYANOCOBALAMIN. [Concomitant]
     Active Substance: CYANOCOBALAMIN
  16. GUAIFENESIN. [Concomitant]
     Active Substance: GUAIFENESIN
  17. ALBUTEROL. [Concomitant]
     Active Substance: ALBUTEROL
  18. HYDROCODONE [Concomitant]
     Active Substance: HYDROCODONE
  19. CYMBALTA [Concomitant]
     Active Substance: DULOXETINE HYDROCHLORIDE
  20. DOXYCYCLINE. [Concomitant]
     Active Substance: DOXYCYCLINE
  21. COLCHICINE. [Concomitant]
     Active Substance: COLCHICINE
  22. PREDNISONE. [Concomitant]
     Active Substance: PREDNISONE
  23. NOVOLOG [Concomitant]
     Active Substance: INSULIN ASPART
  24. LIDOCAINE/PRILOCAINE [Concomitant]
     Active Substance: LIDOCAINE\PRILOCAINE
  25. EPIPEN [Concomitant]
     Active Substance: EPINEPHRINE
  26. HIZENTRA [Suspect]
     Active Substance: HUMAN IMMUNOGLOBULIN G
     Route: 058
  27. ACETAMINOPHEN. [Concomitant]
     Active Substance: ACETAMINOPHEN
  28. MAGNESIUM [Concomitant]
     Active Substance: MAGNESIUM
  29. MULTI B PLUS [Concomitant]
  30. ALLOPURINOL. [Concomitant]
     Active Substance: ALLOPURINOL
  31. DIPHENHYDRAMINE. [Concomitant]
     Active Substance: DIPHENHYDRAMINE
  32. CELEXA [Concomitant]
     Active Substance: CITALOPRAM HYDROBROMIDE
  33. LEVEMIR [Concomitant]
     Active Substance: INSULIN DETEMIR
  34. ONE A DAY [Concomitant]
  35. HIZENTRA [Suspect]
     Active Substance: HUMAN IMMUNOGLOBULIN G
     Route: 058
     Dates: start: 20100729
  36. LIOTHYRONINE [Concomitant]
     Active Substance: LIOTHYRONINE

REACTIONS (2)
  - Cystitis [Unknown]
  - Gastroenteritis viral [Unknown]
